FAERS Safety Report 9610322 (Version 2)
Quarter: 2013Q4

REPORT INFORMATION
  Report Type: Spontaneous
  Country: US (occurrence: US)
  Receive Date: 20131009
  Receipt Date: 20131009
  Transmission Date: 20140711
  Serious: No
  Sender: FDA-Public Use
  Company Number: US-PURDUE-USA-2012-0096227

PATIENT
  Age: 50 Year
  Sex: Female

DRUGS (2)
  1. BUTRANS [Suspect]
     Indication: BACK PAIN
     Dosage: 10 MCG, UNK
     Route: 062
     Dates: start: 20121115, end: 20121121
  2. ULTRAM [Concomitant]
     Indication: BACK PAIN
     Dosage: 100 MG, QID
     Route: 048
     Dates: end: 20121115

REACTIONS (7)
  - Extra dose administered [Unknown]
  - Hypersensitivity [Unknown]
  - Application site pustules [Not Recovered/Not Resolved]
  - Application site erythema [Not Recovered/Not Resolved]
  - Application site pruritus [Not Recovered/Not Resolved]
  - Application site vesicles [Not Recovered/Not Resolved]
  - Drug ineffective [Not Recovered/Not Resolved]
